FAERS Safety Report 21922628 (Version 1)
Quarter: 2023Q1

REPORT INFORMATION
  Report Type: Report from Study
  Country: CA (occurrence: CA)
  Receive Date: 20230128
  Receipt Date: 20230128
  Transmission Date: 20230417
  Serious: Yes (Other)
  Sender: FDA-Public Use
  Company Number: CA-002147023-NVSC2022CA135077

PATIENT
  Age: 51 Year
  Sex: Female

DRUGS (1)
  1. HYRIMOZ [Suspect]
     Active Substance: ADALIMUMAB-ADAZ
     Indication: Crohn^s disease
     Dosage: 40 MG
     Route: 058
     Dates: start: 20220512

REACTIONS (8)
  - Myocardial infarction [Unknown]
  - Arthralgia [Unknown]
  - Chest discomfort [Unknown]
  - Diarrhoea [Unknown]
  - Agitation [Unknown]
  - Migraine [Unknown]
  - Insomnia [Unknown]
  - Arterial disorder [Unknown]

NARRATIVE: CASE EVENT DATE: 20230113
